FAERS Safety Report 4969731-9 (Version None)
Quarter: 2006Q2

REPORT INFORMATION
  Report Type: 
  Country: None (occurrence: None)
  Receive Date: 20060411
  Receipt Date: 20060331
  Transmission Date: 20061013
  Serious: Yes (Hospitalization)
  Sender: FDA-Public Use
  Company Number: US-MERCK-0604USA00300

PATIENT
  Age: 41 Year
  Sex: Female
  Weight: 80 kg

DRUGS (3)
  1. VIOXX [Suspect]
     Indication: BACK PAIN
     Route: 048
     Dates: start: 20000101, end: 20040304
  2. NEXIUM [Concomitant]
     Route: 065
  3. PREVACID [Concomitant]
     Route: 065

REACTIONS (6)
  - ADVERSE EVENT [None]
  - ANXIETY [None]
  - CEREBRAL ISCHAEMIA [None]
  - CEREBROVASCULAR ACCIDENT [None]
  - DEPRESSION [None]
  - DRUG EXPOSURE DURING PREGNANCY [None]
